FAERS Safety Report 16886667 (Version 2)
Quarter: 2019Q4

REPORT INFORMATION
  Report Type: Spontaneous
  Country: US (occurrence: US)
  Receive Date: 20191004
  Receipt Date: 20191101
  Transmission Date: 20200122
  Serious: No
  Sender: FDA-Public Use
  Company Number: US-SA-2019SA269633

PATIENT
  Sex: Female

DRUGS (1)
  1. DUPIXENT [Suspect]
     Active Substance: DUPILUMAB
     Indication: ECZEMA INFANTILE
     Dosage: 300 MG, QOW
     Route: 058
     Dates: start: 20190326

REACTIONS (2)
  - Malaise [Not Recovered/Not Resolved]
  - Eczema [Not Recovered/Not Resolved]
